FAERS Safety Report 8875560 (Version 1)
Quarter: 2012Q4

REPORT INFORMATION
  Report Type: 
  Country: DE (occurrence: DE)
  Receive Date: 20121030
  Receipt Date: 20121030
  Transmission Date: 20130627
  Serious: Yes (Other)
  Sender: FDA-Public Use
  Company Number: DE-B.I. PHARMACEUTICALS,INC./RIDGEFIELD-2012-EU-05338GD

PATIENT
  Sex: Female

DRUGS (2)
  1. SIFROL [Suspect]
     Indication: RESTLESS LEGS SYNDROME
     Dosage: 1 mg
  2. ISOTRETINOIN [Suspect]

REACTIONS (2)
  - Abortion spontaneous [Unknown]
  - Foetal growth restriction [Unknown]
